FAERS Safety Report 19167489 (Version 3)
Quarter: 2021Q2

REPORT INFORMATION
  Report Type: Spontaneous
  Country: GB (occurrence: GB)
  Receive Date: 20210422
  Receipt Date: 20210516
  Transmission Date: 20210717
  Serious: Yes (Other)
  Sender: FDA-Public Use
  Company Number: GB-ADVANZ PHARMA-202104002862

PATIENT

DRUGS (9)
  1. GABAPENTIN. [Concomitant]
     Active Substance: GABAPENTIN
     Dosage: DRUG WITHDRAWN
  2. PREDNISOLONE. [Suspect]
     Active Substance: PREDNISOLONE
     Dosage: 40 MG, QD
     Route: 048
  3. CETIRIZINE [Concomitant]
     Active Substance: CETIRIZINE HYDROCHLORIDE
     Dosage: DRUG WITHDRAWN
  4. BECLOMETASONE, FORMOTEROL [Concomitant]
     Indication: ASTHMA
     Dosage: INHALER (DRUG WITHDRAWN)
  5. FLUOXETINE [Concomitant]
     Active Substance: FLUOXETINE HYDROCHLORIDE
     Dosage: DRUG WITHDRAWN
  6. PREDNISOLONE. [Suspect]
     Active Substance: PREDNISOLONE
     Indication: GIANT CELL ARTERITIS
     Dosage: 60 MG, QD
     Route: 048
  7. TIXOCORTOL PIVALATE [Concomitant]
     Active Substance: TIXOCORTOL PIVALATE
     Dosage: UNK
  8. DOSULEPIN HYDROCHLORIDE [Concomitant]
     Active Substance: DOTHIEPIN HYDROCHLORIDE
     Dosage: DRUG WITHDRAWN
  9. OMEPRAZOLE. [Concomitant]
     Active Substance: OMEPRAZOLE
     Dosage: DRUG WITHDRAWN

REACTIONS (2)
  - Acute generalised exanthematous pustulosis [Recovered/Resolved]
  - Drug hypersensitivity [Recovered/Resolved]
